FAERS Safety Report 15316185 (Version 6)
Quarter: 2020Q1

REPORT INFORMATION
  Report Type: Spontaneous
  Country: JP (occurrence: JP)
  Receive Date: 20180824
  Receipt Date: 20200330
  Transmission Date: 20200409
  Serious: Yes (Hospitalization, Other)
  Sender: FDA-Public Use
  Company Number: JP-BRISTOL-MYERS SQUIBB COMPANY-BMS-2018-064438

PATIENT
  Age: 69 Year
  Sex: Male
  Weight: 64.8 kg

DRUGS (4)
  1. PACLITAXEL. [Suspect]
     Active Substance: PACLITAXEL
     Indication: HEAD AND NECK CANCER
     Dosage: 170 MILLIGRAM
     Route: 065
     Dates: start: 20170623, end: 20170810
  2. OPDIVO [Suspect]
     Active Substance: NIVOLUMAB
     Indication: HEAD AND NECK CANCER
     Dosage: 192 MG, Q2WK
     Route: 041
     Dates: start: 20171205, end: 20171220
  3. CARBOPLATIN. [Suspect]
     Active Substance: CARBOPLATIN
     Indication: HEAD AND NECK CANCER
     Dosage: 188 MILLIGRAM
     Route: 065
     Dates: start: 20170623, end: 20170810
  4. CETUXIMAB. [Suspect]
     Active Substance: CETUXIMAB
     Indication: HEAD AND NECK CANCER
     Dosage: 340 MILLIGRAM
     Route: 065
     Dates: start: 20170623, end: 20170810

REACTIONS (4)
  - Interstitial lung disease [Recovering/Resolving]
  - Renal disorder [Recovering/Resolving]
  - Dermatitis [Recovering/Resolving]
  - Pruritus [Recovering/Resolving]

NARRATIVE: CASE EVENT DATE: 20180104
